FAERS Safety Report 9026420 (Version 1)
Quarter: 2012Q4

REPORT INFORMATION
  Report Type: Spontaneous
  Country: GB (occurrence: None)
  Receive Date: 20121211
  Receipt Date: 20121211
  Transmission Date: 20130627
  Serious: Yes (Hospitalization)
  Sender: FDA-Public Use
  Company Number: 2012-20643

PATIENT
  Age: 69 Year
  Sex: Male

DRUGS (1)
  1. IBUPROFEN (UNKNOWN) (IBUPROFEN) UNK, UNKUNK [Suspect]
     Indication: PAIN
     Dosage: 400 mg,  tid,  Oral
UNK  to  12/17/2004
     Route: 048
     Dates: end: 20041217

REACTIONS (7)
  - Haematemesis [None]
  - Gastric ulcer [None]
  - Faeces discoloured [None]
  - Abdominal pain [None]
  - Duodenal ulcer [None]
  - Hiatus hernia [None]
  - Helicobacter test positive [None]
